FAERS Safety Report 10757359 (Version 1)
Quarter: 2015Q1

REPORT INFORMATION
  Report Type: Spontaneous
  Country: US (occurrence: US)
  Receive Date: 20150203
  Receipt Date: 20150203
  Transmission Date: 20150721
  Serious: No
  Sender: FDA-Public Use
  Company Number: US-TEVA-537740USA

PATIENT
  Sex: Female
  Weight: 68.1 kg

DRUGS (2)
  1. AZILECT [Suspect]
     Active Substance: RASAGILINE MESYLATE
     Indication: PARKINSON^S DISEASE
     Route: 048
     Dates: start: 201408
  2. ASPIRIN. [Suspect]
     Active Substance: ASPIRIN

REACTIONS (4)
  - Contusion [Recovered/Resolved]
  - Nasal neoplasm [Not Recovered/Not Resolved]
  - Chest pain [Not Recovered/Not Resolved]
  - Vision blurred [Not Recovered/Not Resolved]
